FAERS Safety Report 18968759 (Version 2)
Quarter: 2021Q4

REPORT INFORMATION
  Report Type: Spontaneous
  Country: US (occurrence: US)
  Receive Date: 20210304
  Receipt Date: 20211214
  Transmission Date: 20220304
  Serious: Yes (Other)
  Sender: FDA-Public Use
  Company Number: US-PFIZER INC-2021223293

PATIENT
  Age: 58 Year
  Sex: Female

DRUGS (2)
  1. XELJANZ XR [Suspect]
     Active Substance: TOFACITINIB CITRATE
     Dosage: 11 MG
     Dates: start: 20181201
  2. PREDNISONE [Concomitant]
     Active Substance: PREDNISONE
     Dosage: 2.5 MG QOD

REACTIONS (2)
  - Cataract [Unknown]
  - Pain [Not Recovered/Not Resolved]
